FAERS Safety Report 5901075-0 (Version None)
Quarter: 2008Q3

REPORT INFORMATION
  Report Type: 
  Country: None (occurrence: None)
  Receive Date: 20080929
  Receipt Date: 20021125
  Transmission Date: 20090109
  Serious: No
  Sender: FDA-Public Use
  Company Number: US-BAYER-200225044BWH

PATIENT

DRUGS (1)
  1. AVELOX [Suspect]
     Dosage: TOTAL DAILY DOSE: 400 MG
     Route: 042

REACTIONS (2)
  - FACE OEDEMA [None]
  - OEDEMA PERIPHERAL [None]
